FAERS Safety Report 9745597 (Version 1)
Quarter: 2013Q4

REPORT INFORMATION
  Report Type: Spontaneous
  Country: US (occurrence: US)
  Receive Date: 20131211
  Receipt Date: 20131211
  Transmission Date: 20140711
  Serious: No
  Sender: FDA-Public Use
  Company Number: US-PFIZER INC-2013349520

PATIENT
  Age: 75 Year
  Sex: Female
  Weight: 67.12 kg

DRUGS (4)
  1. GLUCOTROL [Suspect]
     Indication: DIABETES MELLITUS
     Dosage: 10 MG, 1X/DAY
  2. ZOLOFT [Suspect]
     Indication: DEPRESSION
     Dosage: 50 MG, 1X/DAY
     Route: 048
     Dates: start: 2005, end: 201311
  3. JANUVIA [Suspect]
     Indication: DIABETES MELLITUS
     Dosage: 100 MG, DAILY
  4. LIPITOR [Concomitant]
     Indication: BLOOD CHOLESTEROL INCREASED
     Dosage: 10 MG, 1X/DAY

REACTIONS (2)
  - Drug effect incomplete [Unknown]
  - Fear [Unknown]
